FAERS Safety Report 16156263 (Version 1)
Quarter: 2019Q2

REPORT INFORMATION
  Report Type: Spontaneous
  Country: MX (occurrence: MX)
  Receive Date: 20190404
  Receipt Date: 20190404
  Transmission Date: 20190711
  Serious: Yes (Other)
  Sender: FDA-Public Use
  Company Number: MX-ASTRAZENECA-2019SE51402

PATIENT
  Age: 25035 Day
  Sex: Female
  Weight: 47 kg

DRUGS (5)
  1. LOSARTAN. [Concomitant]
     Active Substance: LOSARTAN
     Indication: HYPERTENSION
     Dosage: 1.0MG UNKNOWN
     Route: 048
     Dates: start: 20170325
  2. THEOPHYLLINE [Concomitant]
     Active Substance: THEOPHYLLINE ANHYDROUS
     Indication: PULMONARY HYPERTENSION
     Dosage: UNKNOWN
     Route: 065
     Dates: start: 20170325
  3. ROFLUMILAST. [Suspect]
     Active Substance: ROFLUMILAST
     Indication: EMPHYSEMA
     Dosage: UNKNOWN
     Route: 048
     Dates: start: 20160325
  4. CONBIVENT [Concomitant]
     Indication: EMPHYSEMA
     Dosage: AS REQUIRED
     Route: 055
     Dates: start: 20160325
  5. SILDENAFIL. [Concomitant]
     Active Substance: SILDENAFIL
     Indication: PULMONARY HYPERTENSION
     Dosage: UNKNOWN
     Route: 048
     Dates: start: 20170325

REACTIONS (2)
  - Hypertension [Not Recovered/Not Resolved]
  - Pulmonary hypertension [Not Recovered/Not Resolved]

NARRATIVE: CASE EVENT DATE: 20170325
